FAERS Safety Report 21878404 (Version 2)
Quarter: 2023Q1

REPORT INFORMATION
  Report Type: Report from Study
  Country: FR (occurrence: FR)
  Receive Date: 20230118
  Receipt Date: 20230124
  Transmission Date: 20230417
  Serious: Yes (Other)
  Sender: FDA-Public Use
  Company Number: FR-BAXTER-2022BAX025522

PATIENT
  Age: 71 Year
  Sex: Male

DRUGS (4)
  1. DEXAMETHASONE [Suspect]
     Active Substance: DEXAMETHASONE
     Indication: Product used for unknown indication
     Dosage: 40 MG/DOSE 4 DOSE(S)/WEEK 1 WEEK(S)/CYCLE
     Route: 065
     Dates: end: 20201201
  2. ETOPOSIDE [Suspect]
     Active Substance: ETOPOSIDE
     Indication: Product used for unknown indication
     Dosage: 70 MG/DOSE 4 DOSE(S)/WEEK 1 WEEK(S)/CYCLE
     Route: 065
     Dates: end: 20201201
  3. CYCLOPHOSPHAMIDE [Suspect]
     Active Substance: CYCLOPHOSPHAMIDE
     Indication: Product used for unknown indication
     Dosage: 700 MG/DOSE 4 DOSE(S)/WEEK 1 WEEK(S)/CYCLE
     Route: 065
     Dates: end: 20201201
  4. DOXORUBICIN [Suspect]
     Active Substance: DOXORUBICIN
     Indication: Product used for unknown indication
     Dosage: 40 MG/DOSE 1 DOSE(S)/WEEK 1 WEEK(S)/CYCLE
     Route: 065
     Dates: end: 20201201

REACTIONS (1)
  - Pancytopenia [Unknown]

NARRATIVE: CASE EVENT DATE: 20201201
